FAERS Safety Report 22978379 (Version 2)
Quarter: 2023Q4

REPORT INFORMATION
  Report Type: Spontaneous
  Country: FR (occurrence: FR)
  Receive Date: 20230925
  Receipt Date: 20231009
  Transmission Date: 20240110
  Serious: Yes (Hospitalization, Other)
  Sender: FDA-Public Use
  Company Number: None

PATIENT
  Age: 39 Year
  Sex: Female
  Weight: 98.5 kg

DRUGS (8)
  1. FLUOXETINE [Suspect]
     Active Substance: FLUOXETINE HYDROCHLORIDE
     Indication: Suicide attempt
     Dosage: 30 DOSAGE FORM, 30TABX20MG
     Route: 048
     Dates: start: 20230813
  2. CYAMEMAZINE [Suspect]
     Active Substance: CYAMEMAZINE
     Indication: Suicide attempt
     Dosage: 30 DOSAGE FORM,SCORED FILM-COATED TABLET
     Route: 048
     Dates: start: 20230813
  3. BROMAZEPAM [Suspect]
     Active Substance: BROMAZEPAM
     Indication: Suicide attempt
     Dosage: 30 DOSAGE FORM,QUARTER-SCORED TABLET
     Route: 048
     Dates: start: 20230813
  4. ADVIL [Suspect]
     Active Substance: IBUPROFEN
     Indication: Suicide attempt
     Dosage: UNK
     Route: 048
     Dates: start: 20230813
  5. CLONIDINE [Concomitant]
     Active Substance: CLONIDINE
     Indication: Nightmare
     Dosage: 2 DF IN 1 DAY; IN THE EVENING FOR NIGHTMARES
     Route: 065
  6. CLONIDINE [Concomitant]
     Active Substance: CLONIDINE
     Indication: Poisoning deliberate
  7. VENLAFAXINE [Concomitant]
     Active Substance: VENLAFAXINE HYDROCHLORIDE
     Indication: Poisoning deliberate
     Dosage: 150 MG IN 1 DAY; THE MORNING
     Route: 065
  8. MELATONIN [Concomitant]
     Active Substance: MELATONIN
     Indication: Poisoning deliberate
     Dosage: 2 PILLS IN THE EVENING
     Route: 065

REACTIONS (6)
  - Toxicity to various agents [Recovered/Resolved]
  - Coma [Recovered/Resolved]
  - Pneumonia aspiration [Recovered/Resolved]
  - Hyperleukocytosis [Recovered/Resolved]
  - Drug abuse [Unknown]
  - Suicide attempt [Recovered/Resolved]

NARRATIVE: CASE EVENT DATE: 20230813
